FAERS Safety Report 23675959 (Version 1)
Quarter: 2024Q1

REPORT INFORMATION
  Report Type: Spontaneous
  Country: US (occurrence: US)
  Receive Date: 20240327
  Receipt Date: 20240327
  Transmission Date: 20240410
  Serious: Yes (Hospitalization, Other)
  Sender: FDA-Public Use
  Company Number: US-SANDOZ-SDZ2024US032640

PATIENT
  Age: 58 Year
  Sex: Male

DRUGS (1)
  1. AMOXICILLIN\CLAVULANIC ACID [Suspect]
     Active Substance: AMOXICILLIN\CLAVULANIC ACID
     Indication: Root canal infection
     Dosage: UNK
     Route: 048
     Dates: start: 20240322, end: 20240322

REACTIONS (1)
  - Drug hypersensitivity [Recovering/Resolving]
